FAERS Safety Report 9375492 (Version 1)
Quarter: 2013Q2

REPORT INFORMATION
  Report Type: Spontaneous
  Country: ES (occurrence: ES)
  Receive Date: 20130628
  Receipt Date: 20130628
  Transmission Date: 20140414
  Serious: No
  Sender: FDA-Public Use
  Company Number: ES-EISAI INC-E2090-02715-SPO-ES

PATIENT
  Age: 9 Day
  Sex: Male

DRUGS (6)
  1. ZONISAMIDE [Suspect]
     Indication: EPILEPSY
     Dosage: UNKNOWN
  2. PHENOBARBITAL [Suspect]
     Indication: EPILEPSY
     Dosage: UNKNOWN
  3. LEVETIRACETAM [Suspect]
     Indication: EPILEPSY
     Dosage: UNKNOWN
  4. CLONAZEPAM [Suspect]
     Indication: EPILEPSY
     Dosage: UNKNOWN
  5. VIGABATRIN [Suspect]
     Indication: EPILEPSY
     Dosage: UNKNOWN
  6. ACTH [Suspect]
     Indication: PRODUCT USED FOR UNKNOWN INDICATION
     Dosage: UNKNOWN

REACTIONS (1)
  - Drug ineffective [Not Recovered/Not Resolved]
